FAERS Safety Report 9167504 (Version 1)
Quarter: 2013Q1

REPORT INFORMATION
  Report Type: Spontaneous
  Country: US (occurrence: None)
  Receive Date: 20130313
  Receipt Date: 20130313
  Transmission Date: 20140127
  Serious: Yes (Death)
  Sender: FDA-Public Use
  Company Number: None

PATIENT
  Age: 21 Year
  Sex: Male

DRUGS (2)
  1. CISAPRIDE [Suspect]
     Indication: GASTROINTESTINAL MOTILITY DISORDER
     Dosage: 8.0 CC QID VIA G-TUBE
     Dates: start: 2002
  2. DIGOXIN [Concomitant]

REACTIONS (1)
  - Death [None]
